FAERS Safety Report 5857495-6 (Version None)
Quarter: 2008Q3

REPORT INFORMATION
  Report Type: 
  Country: None (occurrence: None)
  Receive Date: 20080818
  Receipt Date: 20080708
  Transmission Date: 20090109
  Serious: No
  Sender: FDA-Public Use
  Company Number: TPA2008A01078

PATIENT
  Sex: Female

DRUGS (1)
  1. ROZEREM [Suspect]
     Indication: DRUG USE FOR UNKNOWN INDICATION
     Dosage: 8 MG, HS, PER ORAL
     Route: 048
     Dates: start: 20080101, end: 20080101

REACTIONS (2)
  - HALLUCINATION [None]
  - INITIAL INSOMNIA [None]
